FAERS Safety Report 5340714-2 (Version None)
Quarter: 2007Q2

REPORT INFORMATION
  Report Type: 
  Country: None (occurrence: None)
  Receive Date: 20070405
  Receipt Date: 20061218
  Transmission Date: 20071010
  Serious: No
  Sender: FDA-Public Use
  Company Number: US200612003149

PATIENT
  Age: 57 Year
  Sex: Female

DRUGS (6)
  1. CYMBALTA [Suspect]
     Dosage: 60 MG, 2/D
     Dates: start: 20060501
  2. LAMICTAL [Concomitant]
  3. PREGABALIN (PREGABALIN) [Concomitant]
  4. ESZOPICLONE (ESZOPICLONE) [Concomitant]
  5. LORAZEPAM [Concomitant]
  6. EXTRA STRENGTH TYLENOL [Concomitant]

REACTIONS (4)
  - GASTROOESOPHAGEAL REFLUX DISEASE [None]
  - ORAL PAIN [None]
  - PHARYNGOLARYNGEAL PAIN [None]
  - SINUS DISORDER [None]
